FAERS Safety Report 23522697 (Version 9)
Quarter: 2024Q2

REPORT INFORMATION
  Report Type: Spontaneous
  Country: US (occurrence: US)
  Receive Date: 20240214
  Receipt Date: 20240529
  Transmission Date: 20240715
  Serious: No
  Sender: FDA-Public Use
  Company Number: US-PFIZER INC-PV202400013208

PATIENT
  Age: 49 Year
  Sex: Female
  Weight: 78.93 kg

DRUGS (19)
  1. PREMARIN [Suspect]
     Active Substance: ESTROGENS, CONJUGATED
     Indication: Vulvovaginal dryness
     Dosage: UNK
     Dates: start: 202401
  2. PREMARIN [Suspect]
     Active Substance: ESTROGENS, CONJUGATED
     Indication: Atrophic vulvovaginitis
     Dosage: AFTER 2 WEEKS OF DAILY USE
     Route: 067
     Dates: start: 20240125
  3. PREMARIN [Suspect]
     Active Substance: ESTROGENS, CONJUGATED
     Indication: Menopause
     Dosage: 0.5 G, 3X/WEEKLY
     Route: 067
  4. BETADINE [Concomitant]
     Active Substance: POVIDONE-IODINE
     Dosage: UNK
  5. ALBUTEROL SULFATE [Concomitant]
     Active Substance: ALBUTEROL SULFATE
     Dosage: UNK, EVERY 4 HRS (1 PUFF EVERY 4 HOURS)
  6. AMLODIPINE [Concomitant]
     Active Substance: AMLODIPINE BESYLATE
     Dosage: 5 MG, DAILY
  7. AZELASTINE [Concomitant]
     Active Substance: AZELASTINE\AZELASTINE HYDROCHLORIDE
     Dosage: UNK, 2X/DAY (2 SPRAYS EACH NOSTRIL 2C DAILY)
     Route: 045
  8. BACLOFEN [Concomitant]
     Active Substance: BACLOFEN
     Dosage: 10 MG: 1 TAB 3X DAILY AS NEEDED
  9. CETIRIZINE [Concomitant]
     Active Substance: CETIRIZINE HYDROCHLORIDE
     Dosage: 10 MG, 2X/DAY
  10. DICLOFENAC SODIUM [Concomitant]
     Active Substance: DICLOFENAC\DICLOFENAC SODIUM
     Dosage: 75 MG: 2X DAILY WITH FOOD
  11. DOCUSATE SODIUM [Concomitant]
     Active Substance: DOCUSATE SODIUM
     Dosage: 100 MG, 3X/DAY
  12. EPINEPHRINE [Concomitant]
     Active Substance: EPINEPHRINE
     Indication: Anaphylactic reaction
     Dosage: 0.3 MG
     Route: 030
  13. EZETIMIBE [Concomitant]
     Active Substance: EZETIMIBE
     Dosage: 10 MG, DAILY
  14. FAMOTIDINE [Concomitant]
     Active Substance: FAMOTIDINE
     Dosage: 20MG 2X DAILY WITH DICLOFENAC
  15. HUMIRA [Concomitant]
     Active Substance: ADALIMUMAB
     Dosage: UNK (40 MG/0.4 ML,  EVERY 2 WEEKS)
     Route: 058
  16. MOMETASONE [Concomitant]
     Active Substance: MOMETASONE
     Dosage: UNK, 2X/DAY (2 SPRAY IN EACH NOSTRIL 2X DAILY)
     Route: 045
  17. NORCO [Concomitant]
     Active Substance: ACETAMINOPHEN\HYDROCODONE BITARTRATE
     Dosage: 7.5/325: 1 TAB 6 HOURS AS NEEDED
  18. SYMBICORT [Concomitant]
     Active Substance: BUDESONIDE\FORMOTEROL FUMARATE DIHYDRATE
     Dosage: UNK, 2X/DAY (SYMBICORT INHALER-80/4.5: 2 PUFFS TWICE DAILY)
  19. ONE A DAY WOMEN^S [ASCORBIC ACID;BETACAROTENE;CALCIUM CARBONATE;CALCIU [Concomitant]
     Dosage: 1 DF, DAILY

REACTIONS (6)
  - Incorrect dose administered by device [Unknown]
  - Off label use [Unknown]
  - Product design issue [Unknown]
  - Device leakage [Unknown]
  - Device mechanical issue [Unknown]
  - Device difficult to use [Unknown]

NARRATIVE: CASE EVENT DATE: 20240125
